FAERS Safety Report 10290163 (Version 1)
Quarter: 2014Q3

REPORT INFORMATION
  Report Type: Spontaneous
  Country: US (occurrence: None)
  Receive Date: 20140707
  Receipt Date: 20140707
  Transmission Date: 20150326
  Serious: Yes (Hospitalization, Other)
  Sender: FDA-Public Use
  Company Number: None

PATIENT
  Age: 54 Year
  Sex: Female
  Weight: 90.72 kg

DRUGS (14)
  1. GABAPENTIN. [Concomitant]
     Active Substance: GABAPENTIN
  2. FISH OIL [Concomitant]
     Active Substance: FISH OIL
  3. D3 [Concomitant]
     Active Substance: 25-HYDROXYCHOLECALCIFEROL, 5-TRANS-
  4. SIMVASTATIN. [Concomitant]
     Active Substance: SIMVASTATIN
  5. SYMAX DT [Concomitant]
  6. CREAMYRDEDERM [Concomitant]
  7. DITROPAN [Suspect]
     Active Substance: OXYBUTYNIN CHLORIDE
     Indication: BLADDER NECK SUSPENSION
     Route: 048
     Dates: start: 20140127, end: 20140317
  8. CITRUS BIOFLAVOROIDS [Concomitant]
  9. SERTRALIDE HCL [Concomitant]
  10. DIAZEPAM. [Concomitant]
     Active Substance: DIAZEPAM
  11. NAMENDA [Concomitant]
     Active Substance: MEMANTINE HYDROCHLORIDE
  12. TRIAMCIN [Concomitant]
  13. VITAMIN E [Concomitant]
     Active Substance: .ALPHA.-TOCOPHEROL
  14. K2 (VITAMIN) [Concomitant]
     Active Substance: MENAQUINONE 6

REACTIONS (1)
  - Skin striae [None]
